FAERS Safety Report 11133257 (Version 1)
Quarter: 2015Q2

REPORT INFORMATION
  Report Type: Spontaneous
  Country: FR (occurrence: FR)
  Receive Date: 20150522
  Receipt Date: 20150522
  Transmission Date: 20150821
  Serious: Yes (Death)
  Sender: FDA-Public Use
  Company Number: FR-IMPAX LABORATORIES, INC-2015-IPXL-00552

PATIENT
  Age: 35 Year
  Sex: Female

DRUGS (1)
  1. BACLOFEN. [Suspect]
     Active Substance: BACLOFEN
     Indication: ALCOHOL USE
     Dosage: UNK
     Route: 065

REACTIONS (2)
  - Poisoning deliberate [Fatal]
  - Completed suicide [Fatal]
